FAERS Safety Report 17236045 (Version 3)
Quarter: 2020Q1

REPORT INFORMATION
  Report Type: Spontaneous
  Country: US (occurrence: US)
  Receive Date: 20200106
  Receipt Date: 20200127
  Transmission Date: 20200409
  Serious: Yes (Other)
  Sender: FDA-Public Use
  Company Number: US-ELI_LILLY_AND_COMPANY-US201912012985

PATIENT
  Age: 55 Year
  Sex: Male

DRUGS (3)
  1. HUMULIN R U-500 [Suspect]
     Active Substance: INSULIN HUMAN
     Indication: TYPE 2 DIABETES MELLITUS
     Dosage: 75-240 U, UNKNOWN
     Route: 058
     Dates: start: 2009
  2. HUMULIN R U-500 [Suspect]
     Active Substance: INSULIN HUMAN
     Dosage: 75-240 U, UNKNOWN
     Route: 058
     Dates: start: 20191225
  3. HUMULIN R U-500 [Suspect]
     Active Substance: INSULIN HUMAN
     Dosage: 75-240 U, UNKNOWN
     Route: 058
     Dates: start: 20191225

REACTIONS (8)
  - Respiration abnormal [Not Recovered/Not Resolved]
  - Blood glucose increased [Recovered/Resolved]
  - Visual impairment [Unknown]
  - Incorrect dose administered [Unknown]
  - Blood glucose decreased [Not Recovered/Not Resolved]
  - Blood glucose increased [Not Recovered/Not Resolved]
  - Dysarthria [Not Recovered/Not Resolved]
  - Feeling abnormal [Not Recovered/Not Resolved]

NARRATIVE: CASE EVENT DATE: 20191223
